FAERS Safety Report 10080659 (Version 2)
Quarter: 2014Q2

REPORT INFORMATION
  Report Type: Spontaneous
  Country: ES (occurrence: ES)
  Receive Date: 20140416
  Receipt Date: 20140416
  Transmission Date: 20141212
  Serious: Yes (Other)
  Sender: FDA-Public Use
  Company Number: ES-AMGEN INC.-ESPSP2014016010

PATIENT
  Age: 68 Year
  Sex: Female

DRUGS (10)
  1. ENBREL [Suspect]
     Indication: RHEUMATOID ARTHRITIS
     Dosage: 50 MG, UNK
     Route: 065
  2. ENBREL [Suspect]
     Dosage: 50 MG, WEEKLY (ON MONDAYS)
     Route: 065
  3. METHOTREXATE                       /00113802/ [Suspect]
     Indication: RHEUMATOID ARTHRITIS
     Dosage: 10 MG, WEEKLY (ON THURSDAYS)
     Route: 058
  4. DACORTIN [Concomitant]
     Indication: RHEUMATOID ARTHRITIS
     Dosage: 5 MG, 1X/DAY (5 MG/24H)
  5. TARDYFERON-FOL [Concomitant]
     Indication: ANAEMIA
     Dosage: 80 MG, 1X/DAY (80 MG/24H)
  6. SEROXAT [Concomitant]
     Indication: ANXIETY
     Dosage: 20 MG, 1X/DAY (20 MG/24H)
  7. PARACETAMOL [Concomitant]
     Indication: PAIN
     Dosage: 1 G/8H
  8. FOLIC ACID [Concomitant]
     Indication: RHEUMATOID ARTHRITIS
     Dosage: 10 MG, WEEKLY (2 TABLETS OF 5 MG/WEEKLY, ON FRIDAYS)
  9. IBUPROFEN [Concomitant]
     Indication: PAIN
     Dosage: 1 G, 3X/DAY (1 G/8H)
  10. RAMIPRIL BEXAL [Concomitant]
     Indication: HYPERTENSION
     Dosage: 2.5 MG, 1X/DAY (2.5 MG/24H)

REACTIONS (14)
  - Pyrexia [Unknown]
  - Productive cough [Not Recovered/Not Resolved]
  - Chest discomfort [Unknown]
  - Drug ineffective [Unknown]
  - Leukopenia [Unknown]
  - Injection site pain [Unknown]
  - Injection site haematoma [Unknown]
  - Injection site erythema [Unknown]
  - Injection site inflammation [Unknown]
  - Injection site rash [Unknown]
  - Injection site pruritus [Unknown]
  - Injection site warmth [Unknown]
  - Injection site discomfort [Unknown]
  - Nasopharyngitis [Unknown]
